FAERS Safety Report 9913984 (Version 2)
Quarter: 2014Q1

REPORT INFORMATION
  Report Type: Report from Study
  Country: ZW (occurrence: ZW)
  Receive Date: 20140220
  Receipt Date: 20140220
  Transmission Date: 20141002
  Serious: Yes (Life-Threatening, Hospitalization, Other)
  Sender: FDA-Public Use
  Company Number: ZW-ABBVIE-11P-190-0732005-00

PATIENT
  Age: 69 Year
  Sex: Male

DRUGS (4)
  1. ALUVIA TABLETS [Suspect]
     Indication: HIV INFECTION
     Route: 048
     Dates: start: 20101116
  2. ABACAVIR [Concomitant]
     Indication: HIV INFECTION
     Dates: start: 20101116
  3. DIDANOSINE [Concomitant]
     Indication: HIV INFECTION
     Dates: start: 20101116
  4. COTRIMOXAMOLE [Concomitant]
     Indication: PRODUCT USED FOR UNKNOWN INDICATION
     Dates: start: 20090213

REACTIONS (2)
  - Respiratory distress [Unknown]
  - Pneumonia [Recovered/Resolved]
